FAERS Safety Report 5038781-9 (Version None)
Quarter: 2006Q2

REPORT INFORMATION
  Report Type: 
  Country: None (occurrence: None)
  Receive Date: 20060626
  Receipt Date: 20060607
  Transmission Date: 20061013
  Serious: Yes (Hospitalization)
  Sender: FDA-Public Use
  Company Number: 226310

PATIENT
  Age: 72 Year
  Sex: Female

DRUGS (3)
  1. AVASTIN [Suspect]
     Indication: COLORECTAL CANCER METASTATIC
     Dosage: 750 MG, Q3W, INTRAVENOUS
     Route: 042
     Dates: start: 20060206
  2. MITOMYCIN [Suspect]
     Indication: COLORECTAL CANCER METASTATIC
  3. XELODA [Suspect]
     Indication: COLORECTAL CANCER METASTATIC
     Dosage: 3300 MG, QD, ORAL
     Route: 048
     Dates: start: 20060206

REACTIONS (1)
  - SCLERODERMA [None]
